FAERS Safety Report 11752063 (Version 1)
Quarter: 2015Q4

REPORT INFORMATION
  Report Type: Spontaneous
  Country: US (occurrence: US)
  Receive Date: 20151118
  Receipt Date: 20151118
  Transmission Date: 20160304
  Serious: No
  Sender: FDA-Public Use
  Company Number: US-UCBSA-2015000812

PATIENT
  Age: 78 Year
  Sex: Female

DRUGS (1)
  1. POLYTHYLENE GLYCOL 3350 OTC [Suspect]
     Active Substance: POLYETHYLENE GLYCOL 3500
     Indication: PRODUCT USED FOR UNKNOWN INDICATION
     Dosage: UNKNOWN DOSE

REACTIONS (1)
  - Mucous stools [Unknown]
